FAERS Safety Report 9029120 (Version 1)
Quarter: 2013Q1

REPORT INFORMATION
  Report Type: Report from Study
  Country: US (occurrence: US)
  Receive Date: 20130122
  Receipt Date: 20130122
  Transmission Date: 20140127
  Serious: Yes (Hospitalization)
  Sender: FDA-Public Use
  Company Number: US-ROCHE-1180163

PATIENT
  Sex: Female

DRUGS (3)
  1. AVASTIN [Suspect]
     Indication: GLIOBLASTOMA MULTIFORME
     Route: 042
     Dates: start: 200906, end: 201002
  2. AVASTIN [Suspect]
     Route: 042
     Dates: start: 201011
  3. CAMPTOSAR [Concomitant]
     Indication: GLIOBLASTOMA MULTIFORME
     Route: 042
     Dates: start: 201011

REACTIONS (8)
  - Hypotension [Recovered/Resolved]
  - Disease progression [Unknown]
  - Protein urine [Not Recovered/Not Resolved]
  - Hypertension [Not Recovered/Not Resolved]
  - Headache [Not Recovered/Not Resolved]
  - Rectal haemorrhage [Not Recovered/Not Resolved]
  - Constipation [Unknown]
  - Vomiting [Unknown]
